FAERS Safety Report 20086020 (Version 3)
Quarter: 2022Q2

REPORT INFORMATION
  Report Type: Report from Study
  Country: US (occurrence: US)
  Receive Date: 20211118
  Receipt Date: 20220407
  Transmission Date: 20220721
  Serious: No
  Sender: FDA-Public Use
  Company Number: US-NOVARTISTESTPH-NVSC2021US264199

PATIENT
  Sex: Male

DRUGS (4)
  1. ENTRESTO [Suspect]
     Active Substance: SACUBITRIL\VALSARTAN
     Indication: Product used for unknown indication
     Dosage: UNK UNK, BID
     Route: 048
  2. VITAMIN A [Concomitant]
     Active Substance: VITAMIN A
     Indication: Product used for unknown indication
     Dosage: UNK
     Route: 065
  3. VITAMIN B12 [Concomitant]
     Active Substance: CYANOCOBALAMIN
     Indication: Product used for unknown indication
     Dosage: UNK
     Route: 065
  4. BISOLOL [Concomitant]
     Indication: Product used for unknown indication
     Route: 065

REACTIONS (10)
  - Fluid retention [Unknown]
  - Glycosylated haemoglobin increased [Unknown]
  - Weight increased [Unknown]
  - Blood calcium decreased [Unknown]
  - Dizziness [Recovered/Resolved]
  - Renal disorder [Recovered/Resolved]
  - Abdominal distension [Unknown]
  - Thirst [Unknown]
  - Pollakiuria [Unknown]
  - Dyspnoea [Unknown]
